FAERS Safety Report 6499860-2 (Version None)
Quarter: 2009Q4

REPORT INFORMATION
  Report Type: 
  Country: None (occurrence: None)
  Receive Date: 20091214
  Receipt Date: 20091214
  Transmission Date: 20100525
  Serious: Yes (Hospitalization)
  Sender: FDA-Public Use
  Company Number: None

PATIENT
  Age: 49 Year
  Sex: Female
  Weight: 99.7913 kg

DRUGS (2)
  1. AVELOX [Suspect]
     Indication: OROPHARYNGEAL PAIN
     Dosage: 1 1 PO
     Route: 048
     Dates: start: 20091210, end: 20091210
  2. AVELOX [Suspect]
     Indication: SINUSITIS
     Dosage: 1 1 PO
     Route: 048
     Dates: start: 20091210, end: 20091210

REACTIONS (17)
  - AGEUSIA [None]
  - ANOSMIA [None]
  - BACK PAIN [None]
  - BURNING SENSATION [None]
  - CHILLS [None]
  - DIZZINESS [None]
  - DYSPNOEA [None]
  - ERYTHEMA [None]
  - NAUSEA [None]
  - OEDEMA PERIPHERAL [None]
  - PALPITATIONS [None]
  - PARAESTHESIA ORAL [None]
  - PRURITUS [None]
  - SPEECH DISORDER [None]
  - SWOLLEN TONGUE [None]
  - TREMOR [None]
  - URTICARIA [None]
